FAERS Safety Report 10235465 (Version 4)
Quarter: 2015Q3

REPORT INFORMATION
  Report Type: Spontaneous
  Country: JP (occurrence: JP)
  Receive Date: 20140613
  Receipt Date: 20150724
  Transmission Date: 20151125
  Serious: Yes (Hospitalization)
  Sender: FDA-Public Use
  Company Number: JP-ABBVIE-14K-087-1246612-00

PATIENT
  Age: 44 Year
  Sex: Female
  Weight: 53.6 kg

DRUGS (1)
  1. LEUPLIN [Suspect]
     Active Substance: LEUPROLIDE ACETATE
     Indication: UTERINE LEIOMYOMA
     Dosage: 1.88 MG, MONTHLY
     Route: 058
     Dates: start: 20140305, end: 20140430

REACTIONS (3)
  - Injection site swelling [Recovering/Resolving]
  - Hysterectomy [Recovering/Resolving]
  - Hypoaesthesia [Unknown]

NARRATIVE: CASE EVENT DATE: 20140430
